FAERS Safety Report 7721627-5 (Version None)
Quarter: 2011Q3

REPORT INFORMATION
  Report Type: 
  Country: None (occurrence: None)
  Receive Date: 20110831
  Receipt Date: 20110819
  Transmission Date: 20111222
  Serious: Yes (Hospitalization)
  Sender: FDA-Public Use
  Company Number: US-GLAXOSMITHKLINE-A0746675A

PATIENT
  Age: 69 Year
  Sex: Male
  Weight: 106.4 kg

DRUGS (1)
  1. AVANDIA [Suspect]
     Indication: TYPE 2 DIABETES MELLITUS
     Dosage: 8MG TWICE PER DAY
     Route: 048
     Dates: start: 19991001, end: 20030101

REACTIONS (12)
  - OEDEMA [None]
  - ARRHYTHMIA [None]
  - ILL-DEFINED DISORDER [None]
  - DIZZINESS [None]
  - MYOCARDIAL ISCHAEMIA [None]
  - HEADACHE [None]
  - MYOCARDIAL INFARCTION [None]
  - BLINDNESS [None]
  - CARDIOVASCULAR DISORDER [None]
  - WEIGHT INCREASED [None]
  - VISION BLURRED [None]
  - AMNESIA [None]
